FAERS Safety Report 23629552 (Version 2)
Quarter: 2024Q2

REPORT INFORMATION
  Report Type: Report from Study
  Country: CA (occurrence: CA)
  Receive Date: 20240314
  Receipt Date: 20240403
  Transmission Date: 20240716
  Serious: Yes (Other)
  Sender: FDA-Public Use
  Company Number: CA-ABBVIE-5676282

PATIENT
  Sex: Male

DRUGS (5)
  1. BOTOX [Suspect]
     Active Substance: ONABOTULINUMTOXINA
     Indication: Muscle spasticity
     Dosage: TIME INTERVAL: AS NECESSARY: FREQUENCY- EVERY 4 MONTHS. 150 DOSAGE FORM
     Route: 030
     Dates: start: 20230619, end: 20230619
  2. BOTOX [Suspect]
     Active Substance: ONABOTULINUMTOXINA
     Indication: Muscle spasticity
     Dosage: TIME INTERVAL: AS NECESSARY: FREQUENCY- EVERY 4 MONTHS. 400 DOSAGE FORM
     Route: 030
     Dates: start: 20231213, end: 20231213
  3. BOTOX [Suspect]
     Active Substance: ONABOTULINUMTOXINA
     Indication: Muscle spasticity
     Dosage: TIME INTERVAL: AS NECESSARY: 300 DOSAGE FORM
     Route: 030
  4. ROSUVASTATIN [Concomitant]
     Active Substance: ROSUVASTATIN
     Indication: Hyperlipidaemia
     Route: 048
  5. GLICLAZIDE [Concomitant]
     Active Substance: GLICLAZIDE
     Indication: Product used for unknown indication
     Route: 048

REACTIONS (22)
  - Metastatic renal cell carcinoma [Unknown]
  - Soft tissue disorder [Unknown]
  - Haematoma [Unknown]
  - Pulmonary fibrosis [Unknown]
  - Spinal retrolisthesis [Unknown]
  - Pathological fracture [Unknown]
  - Vertebral lateral recess stenosis [Unknown]
  - Vertebral foraminal stenosis [Unknown]
  - Spinal cord oedema [Unknown]
  - Intervertebral disc protrusion [Unknown]
  - Vascular injury [Unknown]
  - Ligamentum flavum hypertrophy [Unknown]
  - Nervous system disorder [Unknown]
  - Lymphadenopathy mediastinal [Unknown]
  - Fall [Unknown]
  - Pain [Unknown]
  - Spinal stenosis [Unknown]
  - Haemorrhage [Unknown]
  - Atelectasis [Unknown]
  - Cerebrovascular accident [Unknown]
  - Spondylolisthesis [Unknown]
  - Intervertebral disc degeneration [Unknown]

NARRATIVE: CASE EVENT DATE: 20240101
